FAERS Safety Report 5537077-6 (Version None)
Quarter: 2007Q4

REPORT INFORMATION
  Report Type: 
  Country: None (occurrence: None)
  Receive Date: 20071120
  Receipt Date: 20061026
  Transmission Date: 20080405
  Serious: Yes (Hospitalization, Other)
  Sender: FDA-Public Use
  Company Number: 31634

PATIENT
  Sex: Female

DRUGS (8)
  1. METHOTREXATE [Suspect]
     Indication: RHEUMATOID ARTHRITIS
  2. FORTEO [Concomitant]
  3. NAPROSYN [Concomitant]
  4. GLUCOSAMINE [Concomitant]
  5. IRON [Concomitant]
  6. REMICADE [Concomitant]
  7. CALCIUM/VIT D [Concomitant]
  8. FOLIC ACID [Concomitant]

REACTIONS (2)
  - ANAEMIA [None]
  - THROMBOCYTOPENIA [None]
